FAERS Safety Report 8697638 (Version 2)
Quarter: 2013Q4

REPORT INFORMATION
  Report Type: Spontaneous
  Country: JP (occurrence: JP)
  Receive Date: 20120801
  Receipt Date: 20131031
  Transmission Date: 20140711
  Serious: Yes (Death, Hospitalization)
  Sender: FDA-Public Use
  Company Number: JP-009507513-2012SP031765

PATIENT
  Age: 84 Year
  Sex: Female
  Weight: 54 kg

DRUGS (6)
  1. FARESTON [Suspect]
     Indication: BREAST CANCER STAGE II
     Dosage: 120 MG, QD
     Route: 048
     Dates: start: 20110915, end: 20120517
  2. ALFAROL [Concomitant]
     Dosage: 1 MICROG/BODY, UNK
     Route: 048
     Dates: end: 20120517
  3. MEVALOTIN [Concomitant]
     Indication: HYPERLIPIDAEMIA
     Dosage: 5 MG/BODY
     Route: 048
     Dates: end: 20120517
  4. FLUITRAN [Concomitant]
     Indication: HYPERTENSION
     Dosage: 2 MG/BODY, UNK
     Route: 048
     Dates: end: 20120517
  5. NORVASC [Concomitant]
     Indication: HYPERTENSION
     Dosage: 5 MG/BODY, UNK
     Route: 048
  6. PLETAAL [Concomitant]
     Indication: CEREBRAL INFARCTION
     Dosage: 200 MG/BODY, UNK
     Route: 048
     Dates: end: 20120517

REACTIONS (2)
  - Interstitial lung disease [Fatal]
  - Bronchiectasis [Unknown]
